FAERS Safety Report 4864023-0 (Version None)
Quarter: 2005Q4

REPORT INFORMATION
  Report Type: 
  Country: None (occurrence: None)
  Receive Date: 20051219
  Receipt Date: 20051219
  Transmission Date: 20060501
  Serious: Yes (Hospitalization)
  Sender: FDA-Public Use
  Company Number: None

PATIENT
  Age: 57 Year
  Sex: Male
  Weight: 111 kg

DRUGS (14)
  1. BACLOFEN [Suspect]
     Dosage: 15 MG TID
  2. APAP #3 [Suspect]
     Dosage: Q4 AN
  3. MS CONTIN [Suspect]
     Dosage: 15MG BID
  4. ASPIRIN [Concomitant]
  5. CARVEDILOL [Concomitant]
  6. CLOPIDOGREL [Concomitant]
  7. FUROSEMIDE [Concomitant]
  8. LISINOPRIL [Concomitant]
  9. METFORMIN [Concomitant]
  10. SILDENAFIL [Concomitant]
  11. SPIRONOLACTONE [Concomitant]
  12. VENLAFAXINE HCL [Concomitant]
  13. SIMVASTATIN [Concomitant]
  14. GEMFIBROZIL [Concomitant]

REACTIONS (6)
  - FALL [None]
  - GASTROINTESTINAL HAEMORRHAGE [None]
  - MENTAL STATUS CHANGES [None]
  - RENAL FAILURE ACUTE [None]
  - RHABDOMYOLYSIS [None]
  - SOMNOLENCE [None]
